FAERS Safety Report 8967224 (Version 1)
Quarter: 2012Q4

REPORT INFORMATION
  Report Type: 
  Country: US (occurrence: US)
  Receive Date: 20121214
  Receipt Date: 20121214
  Transmission Date: 20130627
  Serious: No
  Sender: FDA-Public Use
  Company Number: US-GLAXOSMITHKLINE-A0958642A

PATIENT
  Age: 52 Year
  Sex: Female

DRUGS (2)
  1. FLONASE [Suspect]
     Indication: RHINITIS ALLERGIC
     Dosage: 2SPR Per day
     Route: 045
     Dates: start: 20111215, end: 20111216
  2. XANAX [Concomitant]

REACTIONS (2)
  - Anxiety [Not Recovered/Not Resolved]
  - Dizziness [Unknown]
